FAERS Safety Report 5203588-6 (Version None)
Quarter: 2007Q1

REPORT INFORMATION
  Report Type: 
  Country: None (occurrence: None)
  Receive Date: 20070105
  Receipt Date: 20061221
  Transmission Date: 20070707
  Serious: Yes (Hospitalization)
  Sender: FDA-Public Use
  Company Number: 234264

PATIENT
  Age: 67 Year
  Sex: Male

DRUGS (5)
  1. AVASTIN [Suspect]
     Indication: COLORECTAL CANCER
     Dosage: 405 MG, QD; INTRAVENOUS
     Route: 042
     Dates: start: 20051220
  2. CAPECITABINE (CAPECITABINE) [Suspect]
     Indication: COLORECTAL CANCER
     Dosage: 2600 MG, UNK; ORAL
     Route: 048
     Dates: start: 20051221
  3. OXALIPLATIN [Suspect]
     Indication: COLORECTAL CANCER
     Dates: start: 20051220
  4. CETUXIMAB (CETUXIMAB) [Suspect]
     Indication: COLORECTAL CANCER
     Dosage: 688, MG, QD; INTRAVENOUS
     Route: 042
     Dates: start: 20051220
  5. PANTOPRAZOLE SODIUM [Concomitant]

REACTIONS (3)
  - GASTRIC ULCER [None]
  - OESOPHAGITIS [None]
  - VARICES OESOPHAGEAL [None]
